FAERS Safety Report 7738687-8 (Version None)
Quarter: 2011Q3

REPORT INFORMATION
  Report Type: 
  Country: None (occurrence: None)
  Receive Date: 20110908
  Receipt Date: 20110902
  Transmission Date: 20111222
  Serious: No
  Sender: FDA-Public Use
  Company Number: US-PFIZER INC-2011206131

PATIENT
  Age: 57 Year
  Sex: Female

DRUGS (3)
  1. PRADAXA [Concomitant]
     Dosage: UNK
  2. TIKOSYN [Suspect]
     Dosage: UNK
  3. SPIRONOLACTONE [Interacting]
     Dosage: UNK

REACTIONS (1)
  - DRUG INTERACTION [None]
